FAERS Safety Report 11919710 (Version 3)
Quarter: 2016Q1

REPORT INFORMATION
  Report Type: Spontaneous
  Country: US (occurrence: US)
  Receive Date: 20160115
  Receipt Date: 20160217
  Transmission Date: 20160526
  Serious: No
  Sender: FDA-Public Use
  Company Number: US-ASTRAZENECA-2016SE02261

PATIENT
  Sex: Male

DRUGS (2)
  1. SYMBICORT [Suspect]
     Active Substance: BUDESONIDE\FORMOTEROL FUMARATE DIHYDRATE
     Indication: CHRONIC OBSTRUCTIVE PULMONARY DISEASE
     Dosage: 160/4.5 UG, TWO PUFFS EVERY 12 HOURS
     Route: 055
     Dates: start: 201503
  2. COMBIVENT [Concomitant]
     Active Substance: ALBUTEROL SULFATE\IPRATROPIUM BROMIDE
     Dosage: EVERY FOUR HOURS

REACTIONS (11)
  - Chest discomfort [Unknown]
  - Dyspnoea [Unknown]
  - Device defective [Unknown]
  - Intentional product misuse [Unknown]
  - Nervousness [Unknown]
  - Anxiety disorder [Unknown]
  - Cough [Unknown]
  - Wheezing [Not Recovered/Not Resolved]
  - Intentional product misuse [Recovered/Resolved]
  - Circumstance or information capable of leading to medication error [Unknown]
  - Panic disorder [Unknown]
